FAERS Safety Report 23806520 (Version 1)
Quarter: 2024Q2

REPORT INFORMATION
  Report Type: Spontaneous
  Country: US (occurrence: US)
  Receive Date: 20240502
  Receipt Date: 20240502
  Transmission Date: 20240716
  Serious: Yes (Other)
  Sender: FDA-Public Use
  Company Number: US-Accord-421931

PATIENT
  Age: 19 Year
  Sex: Female

DRUGS (7)
  1. ETOPOSIDE [Suspect]
     Active Substance: ETOPOSIDE
     Indication: Angiocentric lymphoma
     Dosage: DAYS 2, 3, AND 4
  2. METHOTREXATE [Suspect]
     Active Substance: METHOTREXATE
     Indication: Angiocentric lymphoma
     Dosage: 2G/M2 DAYS 1, 2, 3, AND 4
  3. LEUCOVORIN [Suspect]
     Active Substance: LEUCOVORIN\LEUCOVORIN CALCIUM
     Indication: Angiocentric lymphoma
     Dosage: DAYS 1, 2, 3,AND 4
  4. IFOSFAMIDE [Suspect]
     Active Substance: IFOSFAMIDE
     Indication: Angiocentric lymphoma
     Dosage: DAYS 2, 3, AND 4
  5. MESNA [Suspect]
     Active Substance: MESNA
     Indication: Angiocentric lymphoma
     Dosage: DAYS 2, 3, AND 4
  6. DEXAMETHASONE [Suspect]
     Active Substance: DEXAMETHASONE
     Indication: Angiocentric lymphoma
     Dosage: DAYS 2, 3, AND 4
  7. PEG/L-ASPARAGINASE [Suspect]
     Active Substance: PEGASPARGASE
     Indication: Angiocentric lymphoma
     Dosage: 1500 U/M2 DAY 7 (RANGE: FROM DAY 5 TO?31)

REACTIONS (4)
  - Mucosal inflammation [Unknown]
  - Oral candidiasis [Unknown]
  - Clostridium difficile infection [Unknown]
  - Off label use [Unknown]
